FAERS Safety Report 5097373-6 (Version None)
Quarter: 2006Q3

REPORT INFORMATION
  Report Type: 
  Country: None (occurrence: None)
  Receive Date: 20060901
  Receipt Date: 20060817
  Transmission Date: 20061208
  Serious: No
  Sender: FDA-Public Use
  Company Number: 2006S1006917

PATIENT
  Age: 56 Year
  Sex: Female
  Weight: 68.0396 kg

DRUGS (6)
  1. PHENYTOIN SODIUM [Suspect]
     Indication: GRAND MAL CONVULSION
     Dosage: 200 + 100 MG;QAM; PO - SEE IMAGE
     Route: 048
     Dates: start: 20060703, end: 20060725
  2. RAMIPRIL (CON.) [Concomitant]
  3. VYTORIN (CON.) [Concomitant]
  4. FOLIC ACID (CON.) [Concomitant]
  5. CITALOPRAM HYDROBROMIDE (CON.) [Concomitant]
  6. ASPIRIN [Concomitant]

REACTIONS (3)
  - ANTICONVULSANT DRUG LEVEL [None]
  - GRAND MAL CONVULSION [None]
  - THERAPEUTIC RESPONSE UNEXPECTED WITH DRUG SUBSTITUTION [None]
